FAERS Safety Report 8008147-8 (Version None)
Quarter: 2011Q4

REPORT INFORMATION
  Report Type: 
  Country: None (occurrence: None)
  Receive Date: 20111227
  Receipt Date: 20111221
  Transmission Date: 20120403
  Serious: Yes (Other)
  Sender: FDA-Public Use
  Company Number: PHFR2011GB06308

PATIENT
  Sex: Male

DRUGS (3)
  1. AMISULPRIDE [Suspect]
  2. OLANZAPINE [Concomitant]
  3. CLOZARIL [Suspect]
     Indication: SCHIZOPHRENIA
     Route: 048
     Dates: start: 19920922

REACTIONS (10)
  - WHITE BLOOD CELL COUNT DECREASED [None]
  - VOMITING [None]
  - NEOPLASM MALIGNANT [None]
  - NEUTROPENIA [None]
  - APPARENT DEATH [None]
  - NEUTROPHIL COUNT DECREASED [None]
  - MALAISE [None]
  - APHAGIA [None]
  - GENERAL PHYSICAL HEALTH DETERIORATION [None]
  - DYSPNOEA [None]
